FAERS Safety Report 10216293 (Version 1)
Quarter: 2014Q2

REPORT INFORMATION
  Report Type: Spontaneous
  Country: US (occurrence: None)
  Receive Date: 20140603
  Receipt Date: 20140603
  Transmission Date: 20141212
  Serious: Yes (Disabling)
  Sender: FDA-Public Use
  Company Number: None

PATIENT
  Age: 22 Year
  Sex: Female
  Weight: 53.52 kg

DRUGS (1)
  1. CIPROFLOXACIN [Suspect]
     Dates: start: 20120620, end: 20120624

REACTIONS (4)
  - Tendonitis [None]
  - Drug ineffective [None]
  - Joint swelling [None]
  - Fear [None]
